FAERS Safety Report 6315602-5 (Version None)
Quarter: 2009Q3

REPORT INFORMATION
  Report Type: 
  Country: None (occurrence: None)
  Receive Date: 20090818
  Receipt Date: 20090803
  Transmission Date: 20100115
  Serious: Yes (Hospitalization)
  Sender: FDA-Public Use
  Company Number: 2009SP017200

PATIENT
  Age: 31 Year
  Sex: Female
  Weight: 53 kg

DRUGS (6)
  1. PUREGON (FOLLITROPIN BETA) [Suspect]
     Indication: IN VITRO FERTILISATION
     Dosage: 150 IU; 100 IU; 75 IU;
     Dates: start: 20080601
  2. PUREGON (FOLLITROPIN BETA) [Suspect]
     Indication: IN VITRO FERTILISATION
     Dosage: 150 IU; 100 IU; 75 IU;
     Dates: start: 20080601
  3. PUREGON (FOLLITROPIN BETA) [Suspect]
     Indication: IN VITRO FERTILISATION
     Dosage: 150 IU; 100 IU; 75 IU;
     Dates: start: 20080601
  4. PREGNYL [Suspect]
     Indication: IN VITRO FERTILISATION
     Dosage: 1000 IU;
     Dates: start: 20080601
  5. TRIPTORELIN (CON.) [Concomitant]
  6. GONAL-F (CON.) [Concomitant]

REACTIONS (9)
  - ASCITES [None]
  - CEREBRAL VENOUS THROMBOSIS [None]
  - COMA [None]
  - DRUG EXPOSURE DURING PREGNANCY [None]
  - HEADACHE [None]
  - HEMIPARESIS [None]
  - NECK PAIN [None]
  - OVARIAN HYPERSTIMULATION SYNDROME [None]
  - PREGNANCY TEST POSITIVE [None]
